FAERS Safety Report 5939686-9 (Version None)
Quarter: 2008Q4

REPORT INFORMATION
  Report Type: 
  Country: None (occurrence: None)
  Receive Date: 20081030
  Receipt Date: 20081030
  Transmission Date: 20090506
  Serious: Yes (Hospitalization)
  Sender: FDA-Public Use
  Company Number: None

PATIENT
  Sex: Male
  Weight: 104.3 kg

DRUGS (2)
  1. DEXAMETHASONE 4MG TAB [Suspect]
     Indication: INFLAMMATION
     Dosage: 4MG Q6H PO
     Route: 048
  2. DEXAMETHASONE 4MG TAB [Suspect]
     Indication: PROPHYLAXIS
     Dosage: 4MG Q6H PO
     Route: 048

REACTIONS (1)
  - VISUAL IMPAIRMENT [None]
